FAERS Safety Report 9456370 (Version 1)
Quarter: 2013Q3

REPORT INFORMATION
  Report Type: Spontaneous
  Country: NO (occurrence: NO)
  Receive Date: 20130813
  Receipt Date: 20130813
  Transmission Date: 20140515
  Serious: Yes (Hospitalization, Other)
  Sender: FDA-Public Use
  Company Number: NO-WATSON-2013-14233

PATIENT
  Sex: Female

DRUGS (1)
  1. CIPROFLOXACIN HYDROCHLORIDE (UNKNOWN) [Suspect]
     Indication: URINARY TRACT INFECTION
     Dosage: ONE TABLET IN THE EVENING AND ONE TABLET IN THE MORNING
     Route: 048

REACTIONS (2)
  - Respiratory failure [Recovered/Resolved]
  - Loss of consciousness [Recovered/Resolved]
